FAERS Safety Report 13677557 (Version 1)
Quarter: 2017Q2

REPORT INFORMATION
  Report Type: Spontaneous
  Country: US (occurrence: US)
  Receive Date: 20170622
  Receipt Date: 20170622
  Transmission Date: 20170830
  Serious: Yes (Other)
  Sender: FDA-Public Use
  Company Number: US-BAYER-2017-113322

PATIENT
  Sex: Male

DRUGS (2)
  1. XELODA [Concomitant]
     Active Substance: CAPECITABINE
     Indication: RECTAL CANCER
     Dosage: UNK
     Dates: start: 201510
  2. REGORAFENIB [Suspect]
     Active Substance: REGORAFENIB
     Indication: RECTAL CANCER METASTATIC
     Dosage: UNK
     Route: 048
     Dates: start: 201510

REACTIONS (4)
  - Pelvic pain [None]
  - Dyspnoea [Recovered/Resolved]
  - Pneumonia aspiration [None]
  - Rectal cancer metastatic [None]

NARRATIVE: CASE EVENT DATE: 2016
